FAERS Safety Report 21908621 (Version 1)
Quarter: 2023Q1

REPORT INFORMATION
  Report Type: Spontaneous
  Country: US (occurrence: None)
  Receive Date: 20230124
  Receipt Date: 20230124
  Transmission Date: 20230418
  Serious: Yes (Other)
  Sender: FDA-Public Use
  Company Number: None

PATIENT
  Age: 39 Year
  Sex: Female
  Weight: 49.5 kg

DRUGS (3)
  1. METHYLPHENIDATE HYDROCHLORIDE [Suspect]
     Active Substance: METHYLPHENIDATE HYDROCHLORIDE
     Indication: Attention deficit hyperactivity disorder
     Dosage: OTHER QUANTITY : 2 TABLET(S);?
     Route: 048
     Dates: start: 20221117, end: 20230119
  2. METOPROLOL SUCCINATE [Concomitant]
     Active Substance: METOPROLOL SUCCINATE
  3. TOPIRAMATE [Concomitant]
     Active Substance: TOPIRAMATE

REACTIONS (13)
  - Product substitution issue [None]
  - Agitation [None]
  - Somnolence [None]
  - Fatigue [None]
  - Migraine [None]
  - Neuropathy peripheral [None]
  - Paraesthesia [None]
  - Pain in extremity [None]
  - Neuropathy peripheral [None]
  - Impaired work ability [None]
  - Loss of personal independence in daily activities [None]
  - Somnolence [None]
  - Depressed mood [None]

NARRATIVE: CASE EVENT DATE: 20221201
